FAERS Safety Report 10209083 (Version 2)
Quarter: 2014Q2

REPORT INFORMATION
  Report Type: Report from Study
  Country: JP (occurrence: JP)
  Receive Date: 20140530
  Receipt Date: 20140611
  Transmission Date: 20141212
  Serious: Yes (Other)
  Sender: FDA-Public Use
  Company Number: JP-BAXTER-2014BAX026883

PATIENT
  Age: 4 Year
  Sex: Female

DRUGS (5)
  1. GAMMAGARD FOR INJECTION 2.5G [Suspect]
     Indication: IMMUNE THROMBOCYTOPENIC PURPURA
     Route: 065
  2. RITUXIMAB [Suspect]
     Indication: IMMUNE THROMBOCYTOPENIC PURPURA
     Route: 042
  3. PREDNISOLONE SODIUM PHOSPHATE [Concomitant]
     Indication: IMMUNE THROMBOCYTOPENIC PURPURA
     Route: 042
  4. CICLOSPORIN [Concomitant]
     Indication: IMMUNE THROMBOCYTOPENIC PURPURA
     Route: 042
  5. CEPHARANTHINE [Concomitant]
     Indication: IMMUNE THROMBOCYTOPENIC PURPURA
     Route: 065

REACTIONS (2)
  - Pyrexia [Unknown]
  - No therapeutic response [Unknown]
